FAERS Safety Report 23124979 (Version 3)
Quarter: 2024Q1

REPORT INFORMATION
  Report Type: Spontaneous
  Country: JP (occurrence: None)
  Receive Date: 20231030
  Receipt Date: 20240328
  Transmission Date: 20240410
  Serious: Yes (Life-Threatening, Hospitalization, Other)
  Sender: FDA-Public Use
  Company Number: 2023A244710

PATIENT
  Age: 74 Year
  Sex: Male
  Weight: 58 kg

DRUGS (14)
  1. IMFINZI [Suspect]
     Active Substance: DURVALUMAB
     Indication: Bile duct cancer
     Dosage: DOSE UNKNOWN1300.0MG UNKNOWN
     Route: 041
     Dates: start: 20230623, end: 20230623
  2. IMFINZI [Suspect]
     Active Substance: DURVALUMAB
     Indication: Bile duct cancer
     Dosage: DOSE UNKNOWN1300.0MG UNKNOWN
     Route: 041
     Dates: start: 20230825
  3. GEMCITABINE HYDROCHLORIDE [Suspect]
     Active Substance: GEMCITABINE HYDROCHLORIDE
     Indication: Bile duct cancer
     Dosage: DOSE UNKNOWN1300.0MG UNKNOWN
     Dates: start: 20230623, end: 20230623
  4. GEMCITABINE HYDROCHLORIDE [Suspect]
     Active Substance: GEMCITABINE HYDROCHLORIDE
     Indication: Bile duct cancer
     Dosage: DOSE UNKNOWN1300.0MG UNKNOWN
     Dates: start: 20230825, end: 2023
  5. GEMCITABINE HYDROCHLORIDE [Suspect]
     Active Substance: GEMCITABINE HYDROCHLORIDE
     Indication: Bile duct cancer
     Dosage: DOSE UNKNOWN UNKNOWN
     Dates: start: 20230929
  6. CISPLATIN [Suspect]
     Active Substance: CISPLATIN
     Indication: Bile duct cancer
     Dosage: DOSE UNKNOWN33.0MG UNKNOWN
     Dates: start: 20230623, end: 20230623
  7. CISPLATIN [Suspect]
     Active Substance: CISPLATIN
     Indication: Bile duct cancer
     Dosage: DOSE UNKNOWN33.0MG UNKNOWN
     Dates: start: 20230825, end: 2023
  8. CISPLATIN [Suspect]
     Active Substance: CISPLATIN
     Indication: Bile duct cancer
     Dosage: UNKNOWN
     Dates: start: 20230929
  9. JANUVIA [Concomitant]
     Active Substance: SITAGLIPTIN PHOSPHATE
     Indication: Diabetes mellitus
  10. ATORVASTATIN [Concomitant]
     Active Substance: ATORVASTATIN
  11. METGLUCO [Concomitant]
     Active Substance: METFORMIN HYDROCHLORIDE
     Indication: Diabetes mellitus
  12. URSO [Concomitant]
     Active Substance: URSODIOL
     Route: 048
  13. CARBOCYSTEINE [Concomitant]
     Active Substance: CARBOCYSTEINE
  14. ELIQUIS [Concomitant]
     Active Substance: APIXABAN
     Indication: Deep vein thrombosis
     Route: 048

REACTIONS (8)
  - Neutrophil count decreased [Recovered/Resolved]
  - White blood cell count decreased [Recovered/Resolved]
  - Cholangitis infective [Unknown]
  - Septic shock [Unknown]
  - Cholecystitis [Recovered/Resolved]
  - Platelet count decreased [Recovering/Resolving]
  - Decreased appetite [Recovered/Resolved]
  - Diarrhoea [Recovered/Resolved]

NARRATIVE: CASE EVENT DATE: 20230625
